FAERS Safety Report 21632854 (Version 1)
Quarter: 2022Q4

REPORT INFORMATION
  Report Type: Report from Study
  Country: US (occurrence: US)
  Receive Date: 20221123
  Receipt Date: 20221123
  Transmission Date: 20230113
  Serious: No
  Sender: FDA-Public Use
  Company Number: US-ABBVIE-4198919

PATIENT
  Sex: Female

DRUGS (2)
  1. HUMIRA [Suspect]
     Active Substance: ADALIMUMAB
     Indication: Crohn^s disease
     Dosage: CITRATE FREE
     Route: 058
  2. PREDNISONE [Suspect]
     Active Substance: PREDNISONE
     Indication: Gastrointestinal inflammation
     Route: 065

REACTIONS (8)
  - Gastrointestinal inflammation [Recovering/Resolving]
  - Asthenia [Unknown]
  - Memory impairment [Unknown]
  - Decreased appetite [Unknown]
  - General physical health deterioration [Unknown]
  - Insomnia [Unknown]
  - Wrong technique in product usage process [Unknown]
  - Drug hypersensitivity [Unknown]
